FAERS Safety Report 7071944-X (Version None)
Quarter: 2010Q4

REPORT INFORMATION
  Report Type: 
  Country: None (occurrence: None)
  Receive Date: 20101029
  Receipt Date: 20091106
  Transmission Date: 20110411
  Serious: No
  Sender: FDA-Public Use
  Company Number: A0815815A

PATIENT
  Age: 67 Year
  Sex: Female

DRUGS (10)
  1. ADVAIR DISKUS 100/50 [Suspect]
     Indication: CHRONIC OBSTRUCTIVE PULMONARY DISEASE
     Dosage: 1PUFF TWICE PER DAY
     Route: 055
     Dates: start: 20091001, end: 20091106
  2. XOPENEX [Concomitant]
  3. SINGULAIR [Concomitant]
  4. SIMVASTATIN [Concomitant]
  5. NEXIUM [Concomitant]
  6. METOCLOPRAMIDE [Concomitant]
  7. LISINOPRIL [Concomitant]
  8. ACTONEL [Concomitant]
  9. VERAMYST [Concomitant]
  10. CLONAZEPAM [Concomitant]

REACTIONS (3)
  - DIZZINESS [None]
  - DRUG INEFFECTIVE [None]
  - PALPITATIONS [None]
